FAERS Safety Report 5525389-1 (Version None)
Quarter: 2007Q4

REPORT INFORMATION
  Report Type: 
  Country: None (occurrence: None)
  Receive Date: 20071126
  Receipt Date: 20071116
  Transmission Date: 20080405
  Serious: Yes (Hospitalization, Other)
  Sender: FDA-Public Use
  Company Number: US-ASTRAZENECA-2007UW02452

PATIENT
  Age: 625 Month
  Sex: Female

DRUGS (5)
  1. SEROQUEL [Suspect]
     Indication: SCHIZOAFFECTIVE DISORDER
     Dosage: 50 MG- 900 MG
     Route: 048
     Dates: start: 20020301, end: 20060801
  2. SEROQUEL [Suspect]
     Indication: DEPRESSION
     Dosage: 50 MG- 900 MG
     Route: 048
     Dates: start: 20020301, end: 20060801
  3. ZYPREXA [Concomitant]
     Dates: start: 20020301
  4. RISPERDAL [Concomitant]
     Dosage: 2 MG- 3 MG
     Dates: start: 20040501, end: 20040601
  5. RISPERDAL [Concomitant]
     Dates: start: 20060801, end: 20060901

REACTIONS (7)
  - CEREBROVASCULAR ACCIDENT [None]
  - GASTROENTERITIS SALMONELLA [None]
  - HEART VALVE OPERATION [None]
  - LUNG OPERATION [None]
  - PANCREATITIS [None]
  - SURGERY [None]
  - TYPE 2 DIABETES MELLITUS [None]
